FAERS Safety Report 17140846 (Version 4)
Quarter: 2020Q3

REPORT INFORMATION
  Report Type: Spontaneous
  Country: US (occurrence: US)
  Receive Date: 20191211
  Receipt Date: 20200831
  Transmission Date: 20201102
  Serious: No
  Sender: FDA-Public Use
  Company Number: US-GILEAD-2019-0441971

PATIENT
  Age: 34 Year
  Sex: Male

DRUGS (1)
  1. ATRIPLA [Suspect]
     Active Substance: EFAVIRENZ\EMTRICITABINE\TENOFOVIR DISOPROXIL FUMARATE
     Indication: HIV INFECTION
     Dosage: 600/200/300 MG
     Route: 048
     Dates: start: 20130731, end: 2019

REACTIONS (10)
  - Tooth fracture [Recovered/Resolved]
  - Anhedonia [Unknown]
  - Pain [Unknown]
  - Bone density decreased [Unknown]
  - Emotional distress [Unknown]
  - Anxiety [Unknown]
  - Tooth loss [Recovered/Resolved]
  - Bone loss [Unknown]
  - Economic problem [Unknown]
  - Teeth brittle [Recovered/Resolved]

NARRATIVE: CASE EVENT DATE: 20150422
